FAERS Safety Report 11599475 (Version 1)
Quarter: 2015Q3

REPORT INFORMATION
  Report Type: Spontaneous
  Country: US (occurrence: US)
  Receive Date: 20150916
  Receipt Date: 20150916
  Transmission Date: 20151125
  Serious: No
  Sender: FDA-Public Use
  Company Number: US-ELI_LILLY_AND_COMPANY-US200710007502

PATIENT
  Age: 49 Year
  Sex: Male
  Weight: 71.66 kg

DRUGS (9)
  1. CALCIUM WITH VITAMIN D [Concomitant]
     Active Substance: CALCIUM\VITAMIN D
  2. TRIFLEX                            /02118501/ [Concomitant]
  3. FOLIC ACID. [Concomitant]
     Active Substance: FOLIC ACID
  4. METAMUCIL [Concomitant]
     Active Substance: PLANTAGO SEED
  5. VITAMINS NOS [Concomitant]
     Active Substance: VITAMINS
  6. FORTEO [Suspect]
     Active Substance: TERIPARATIDE
     Dates: start: 20071106
  7. ZONISAMIDE. [Concomitant]
     Active Substance: ZONISAMIDE
  8. FORTEO [Suspect]
     Active Substance: TERIPARATIDE
     Indication: OSTEOPOROSIS
     Dosage: UNK, UNK
     Dates: start: 200710, end: 2007
  9. PHENYTOIN. [Concomitant]
     Active Substance: PHENYTOIN

REACTIONS (3)
  - Chest discomfort [Not Recovered/Not Resolved]
  - Dyspnoea [Not Recovered/Not Resolved]
  - Cough [Recovering/Resolving]

NARRATIVE: CASE EVENT DATE: 200710
